FAERS Safety Report 6546397-8 (Version None)
Quarter: 2010Q1

REPORT INFORMATION
  Report Type: 
  Country: None (occurrence: None)
  Receive Date: 20100122
  Receipt Date: 20100107
  Transmission Date: 20100710
  Serious: Yes (Other)
  Sender: FDA-Public Use
  Company Number: PT-EISAI INC.-E0800-00038-SPO-PT

PATIENT
  Sex: Female

DRUGS (1)
  1. SALAGEN [Suspect]
     Indication: SJOGREN'S SYNDROME
     Dosage: UNKNOWN
     Route: 048
     Dates: start: 20090901

REACTIONS (2)
  - BLOOD CHROMOGRANIN A INCREASED [None]
  - SERUM SEROTONIN INCREASED [None]
